FAERS Safety Report 7145962-7 (Version None)
Quarter: 2010Q4

REPORT INFORMATION
  Report Type: 
  Country: None (occurrence: None)
  Receive Date: 20101208
  Receipt Date: 20101130
  Transmission Date: 20110411
  Serious: Yes (Death)
  Sender: FDA-Public Use
  Company Number: US-ROCHE-746712

PATIENT
  Sex: Male
  Weight: 81 kg

DRUGS (8)
  1. BEVACIZUMAB [Suspect]
     Indication: NON-SMALL CELL LUNG CANCER
     Dosage: FREQUENCY REPORTED AS DAY ONE EVERY 21 DAYS
     Route: 042
     Dates: start: 20100615
  2. PEMETREXED [Suspect]
     Indication: NON-SMALL CELL LUNG CANCER
     Dosage: DOSE REPORTED AS 500 MG/M2, FREQUENCY REPORTED AS DAY 1 EVERY 21 DAYS
     Route: 042
     Dates: start: 20100615
  3. CISPLATIN [Suspect]
     Indication: NON-SMALL CELL LUNG CANCER
     Dosage: DOSE REPORTED AS 75 MG/M2, FREQUENCY REPORTED AS DAY 1 EVERY 21 DAYS
     Route: 042
     Dates: start: 20100615
  4. FOLIC ACID [Concomitant]
     Dates: start: 20100607
  5. VITAMIN B-12 [Concomitant]
     Dates: start: 20100607
  6. DEXAMETHASONE [Concomitant]
     Dates: start: 20100614
  7. OMEPRAZOLE [Concomitant]
  8. CACIT D3 [Concomitant]

REACTIONS (1)
  - SUDDEN DEATH [None]
